FAERS Safety Report 26122918 (Version 1)
Quarter: 2025Q4

REPORT INFORMATION
  Report Type: Spontaneous
  Country: KR (occurrence: KR)
  Receive Date: 20251204
  Receipt Date: 20251204
  Transmission Date: 20260117
  Serious: Yes (Other)
  Sender: MERCK SHARP & DOHME LLC
  Company Number: KR-009507513-2353557

PATIENT
  Age: 71 Year
  Sex: Female

DRUGS (4)
  1. KEYTRUDA [Suspect]
     Active Substance: PEMBROLIZUMAB
     Indication: Cervix neoplasm
     Dosage: DOSE: 200 MG, DOSAGE INTERVAL: 1 DAY (EXACT FREQUENCY NOT PROVIDED),DURATION OF DRUG ADMINISTRATI...
     Dates: start: 20240207, end: 20240228
  2. BEVACIZUMAB [Suspect]
     Active Substance: BEVACIZUMAB
     Indication: Cervix neoplasm
     Dosage: DOSE: 71.5 MG, DOSAGE INTERVAL: 1 DAY (EXACT FREQUENCY NOT PROVIDED),DURATION OF DRUG ADMINISTRAT...
     Dates: start: 20240207, end: 20240228
  3. PACLITAXEL [Suspect]
     Active Substance: PACLITAXEL
     Indication: Cervix neoplasm
     Dosage: DOSE: 276.5 MG, DOSAGE INTERVAL: 1 DAY (EXACT FREQUENCY NOT PROVIDED),DURATION OF DRUG ADMINISTRA...
     Dates: start: 20240207, end: 20240228
  4. CISPLATIN [Suspect]
     Active Substance: CISPLATIN
     Indication: Cervix neoplasm
     Dosage: DOSE: 29 MG, DOSAGE INTERVAL: 1 DAY (EXACT FREQUENCY NOT PROVIDED),DURATION OF DRUG ADMINISTRATIO...
     Dates: start: 20240207, end: 20240228

REACTIONS (1)
  - Leukopenia [Recovered/Resolved]

NARRATIVE: CASE EVENT DATE: 20240315
